FAERS Safety Report 20000869 (Version 2)
Quarter: 2022Q1

REPORT INFORMATION
  Report Type: Spontaneous
  Country: US (occurrence: None)
  Receive Date: 20211027
  Receipt Date: 20220118
  Transmission Date: 20220424
  Serious: Yes (Other)
  Sender: FDA-Public Use
  Company Number: US-MERCK HEALTHCARE KGAA-9274317

PATIENT
  Age: 31 Year
  Sex: Female

DRUGS (2)
  1. GONAL-F [Suspect]
     Active Substance: FOLLITROPIN
     Indication: In vitro fertilisation
     Dosage: SINCE LAST 6 DAYS
     Route: 058
     Dates: start: 202110
  2. MENOPUR [Suspect]
     Active Substance: FOLLITROPIN\LUTEINIZING HORMONE
     Indication: In vitro fertilisation
     Dosage: SINCE LAST 6 DAYS
     Dates: start: 202110

REACTIONS (1)
  - Eye haemorrhage [Unknown]

NARRATIVE: CASE EVENT DATE: 20211001
